FAERS Safety Report 9317966 (Version 1)
Quarter: 2013Q2

REPORT INFORMATION
  Report Type: Spontaneous
  Country: US (occurrence: None)
  Receive Date: 20130524
  Receipt Date: 20130524
  Transmission Date: 20140414
  Serious: No
  Sender: FDA-Public Use
  Company Number: GB-GAMBRO-TW1361521

PATIENT
  Age: 45 Year
  Sex: Male

DRUGS (1)
  1. HEMOLACTOL [Suspect]

REACTIONS (3)
  - Hyperkalaemia [None]
  - Respiratory acidosis [None]
  - Haemofiltration [None]
